FAERS Safety Report 13152343 (Version 3)
Quarter: 2017Q2

REPORT INFORMATION
  Report Type: Spontaneous
  Country: ES (occurrence: ES)
  Receive Date: 20170125
  Receipt Date: 20170612
  Transmission Date: 20170830
  Serious: Yes (Other)
  Sender: FDA-Public Use
  Company Number: ES-GILEAD-2016-0250372

PATIENT
  Age: 49 Year
  Sex: Female
  Weight: 65 kg

DRUGS (9)
  1. HARVONI [Suspect]
     Active Substance: LEDIPASVIR\SOFOSBUVIR
     Indication: HEPATITIS C
     Dosage: 1 DF, UNK
     Route: 048
     Dates: start: 20150818, end: 20151118
  2. RITONAVIR. [Concomitant]
     Active Substance: RITONAVIR
     Dosage: 100 MG, UNK
     Route: 048
     Dates: start: 20101123
  3. SODIUM BICARBONATE. [Concomitant]
     Active Substance: SODIUM BICARBONATE
     Dosage: UNK
     Route: 048
     Dates: start: 2013
  4. DIAZEPAM. [Concomitant]
     Active Substance: DIAZEPAM
     Dosage: 5 MG, UNK
     Route: 048
     Dates: start: 201508
  5. DARUNAVIR [Concomitant]
     Active Substance: DARUNAVIR
     Dosage: 800 MG, UNK
     Route: 048
     Dates: start: 20101123
  6. ETRAVIRINE [Concomitant]
     Active Substance: ETRAVIRINE
     Dosage: 400 MG, UNK
     Route: 048
     Dates: start: 20101123
  7. PARICALCITOL. [Concomitant]
     Active Substance: PARICALCITOL
     Dosage: 2 MG, UNK
     Route: 048
     Dates: start: 2014
  8. PARACETAMOL [Concomitant]
     Active Substance: ACETAMINOPHEN
     Dosage: 1 G, UNK
     Route: 048
  9. LAMIVUDINE. [Concomitant]
     Active Substance: LAMIVUDINE
     Dosage: 150 MG, UNK
     Route: 048
     Dates: start: 20131112

REACTIONS (3)
  - Nephropathy [Not Recovered/Not Resolved]
  - Renal impairment [Not Recovered/Not Resolved]
  - Proteinuria [Not Recovered/Not Resolved]

NARRATIVE: CASE EVENT DATE: 201510
